FAERS Safety Report 6973318-6 (Version None)
Quarter: 2010Q3

REPORT INFORMATION
  Report Type: 
  Country: None (occurrence: None)
  Receive Date: 20100907
  Receipt Date: 20100820
  Transmission Date: 20110219
  Serious: Yes (Death, Hospitalization)
  Sender: FDA-Public Use
  Company Number: AE 2010-222

PATIENT
  Age: 42 Year
  Sex: Female

DRUGS (1)
  1. FAZACLO ODT [Suspect]
     Dosage: 400 MG DAILY; PO
     Route: 048
     Dates: start: 20070315

REACTIONS (1)
  - SEPTIC SHOCK [None]
